FAERS Safety Report 22326687 (Version 3)
Quarter: 2025Q3

REPORT INFORMATION
  Report Type: Spontaneous
  Country: US (occurrence: US)
  Receive Date: 20230516
  Receipt Date: 20250703
  Transmission Date: 20251021
  Serious: No
  Sender: RADIUS PHARM
  Company Number: US-RADIUS HEALTH INC.-2022US003732

PATIENT
  Age: 71 Year
  Sex: Female

DRUGS (1)
  1. TYMLOS [Suspect]
     Active Substance: ABALOPARATIDE
     Indication: Senile osteoporosis
     Route: 058
     Dates: start: 20220726

REACTIONS (14)
  - Nausea [Unknown]
  - Vomiting [Unknown]
  - Dizziness [Unknown]
  - Headache [Unknown]
  - Injection site reaction [Unknown]
  - Palpitations [Unknown]
  - Fatigue [Unknown]
  - Weight increased [Unknown]
  - Product dose omission in error [Unknown]
  - Infection [Unknown]
  - Illness [Unknown]
  - Product dose omission issue [Unknown]
  - Intentional product misuse [Not Recovered/Not Resolved]
  - COVID-19 [Unknown]

NARRATIVE: CASE EVENT DATE: 20220726
